FAERS Safety Report 12616113 (Version 2)
Quarter: 2016Q3

REPORT INFORMATION
  Report Type: Spontaneous
  Country: US (occurrence: US)
  Receive Date: 20160802
  Receipt Date: 20160808
  Transmission Date: 20161109
  Serious: Yes (Other)
  Sender: FDA-Public Use
  Company Number: US-SA-2016SA099114

PATIENT
  Age: 80 Year
  Sex: Female
  Weight: 97.52 kg

DRUGS (15)
  1. LISINOPRIL. [Concomitant]
     Active Substance: LISINOPRIL
  2. ASPIRIN. [Concomitant]
     Active Substance: ASPIRIN
  3. AMLODIPINE [Concomitant]
     Active Substance: AMLODIPINE BESYLATE
  4. METOPROLOL TARTRATE. [Concomitant]
     Active Substance: METOPROLOL TARTRATE
  5. OMEPRAZOLE. [Concomitant]
     Active Substance: OMEPRAZOLE
  6. HYDROCODONE BITARTRATE AND ACETAMINOPHEN [Concomitant]
     Active Substance: ACETAMINOPHEN\HYDROCODONE BITARTRATE
     Indication: PAIN
     Dosage: 5-325, 1 TO 2 TABS. Q4-6 HRS AS NEEDED
  7. SOLOSTAR [Concomitant]
     Active Substance: DEVICE
     Indication: TYPE 2 DIABETES MELLITUS
  8. XARELTO [Concomitant]
     Active Substance: RIVAROXABAN
  9. LANTUS SOLOSTAR [Suspect]
     Active Substance: INSULIN GLARGINE
     Indication: TYPE 2 DIABETES MELLITUS
     Dosage: DOSE:30 UNIT(S)
     Route: 065
  10. STOOL SOFTENER [Concomitant]
     Active Substance: DOCUSATE CALCIUM
     Dosage: 100 MG; 1 TO 3 DAILY PRN
  11. HUMALOG [Concomitant]
     Active Substance: INSULIN LISPRO
     Dosage: 6U INJECTED AT BREAKFAST + 6U INJECTED AT LUNCHTIME DOSE:6 UNIT(S)
  12. METFORMIN/GLIPIZIDE [Concomitant]
     Dosage: 5 MG/500 MG
  13. CENTRUM SILVER [Concomitant]
     Active Substance: MINERALS\VITAMINS
  14. SYNTHROID [Concomitant]
     Active Substance: LEVOTHYROXINE SODIUM
     Dosage: 0.088MG. ONE DAILY ON AN EMPTY STOMACH (4 A.M.)
  15. MINERALS NOS/VITAMINS NOS [Concomitant]

REACTIONS (2)
  - Humerus fracture [Unknown]
  - Fall [Unknown]
